FAERS Safety Report 18901170 (Version 1)
Quarter: 2021Q1

REPORT INFORMATION
  Report Type: Spontaneous
  Country: US (occurrence: US)
  Receive Date: 20210216
  Receipt Date: 20210216
  Transmission Date: 20210420
  Serious: No
  Sender: FDA-Public Use
  Company Number: US-PFIZER INC-2021142819

PATIENT
  Age: 64 Year

DRUGS (1)
  1. FESOTERODINE [Suspect]
     Active Substance: FESOTERODINE
     Indication: HYPERTONIC BLADDER
     Dosage: UNK

REACTIONS (3)
  - Dehydration [Unknown]
  - Drug intolerance [Unknown]
  - Hypertonic bladder [Unknown]
